FAERS Safety Report 14623428 (Version 1)
Quarter: 2018Q1

REPORT INFORMATION
  Report Type: Spontaneous
  Country: US (occurrence: US)
  Receive Date: 20180312
  Receipt Date: 20180312
  Transmission Date: 20180509
  Serious: No
  Sender: FDA-Public Use
  Company Number: US-B.I. PHARMACEUTICALS,INC./RIDGEFIELD-2018-BI-012547

PATIENT
  Age: 54 Year
  Sex: Female

DRUGS (1)
  1. COMBIVENT [Suspect]
     Active Substance: ALBUTEROL SULFATE\IPRATROPIUM BROMIDE
     Indication: ASTHMA
     Dosage: 1 PUFF 3 TIMES PER DAY;  FORM STRENGTH: 20 MCG / 100 MCG; FORMULATION: INHALATION SPRAY? ADMINISTRAT
     Route: 055
     Dates: start: 20180101

REACTIONS (6)
  - Off label use [Unknown]
  - Ear pain [Not Recovered/Not Resolved]
  - Rash [Not Recovered/Not Resolved]
  - Barotitis media [Unknown]
  - Tinnitus [Not Recovered/Not Resolved]
  - Oropharyngeal pain [Not Recovered/Not Resolved]

NARRATIVE: CASE EVENT DATE: 20180108
